FAERS Safety Report 20461803 (Version 2)
Quarter: 2022Q2

REPORT INFORMATION
  Report Type: Spontaneous
  Country: ES (occurrence: ES)
  Receive Date: 20220211
  Receipt Date: 20220420
  Transmission Date: 20220720
  Serious: Yes (Other)
  Sender: FDA-Public Use
  Company Number: ES-002147023-NVSC2022ES027716

PATIENT

DRUGS (1)
  1. XOLAIR [Suspect]
     Active Substance: OMALIZUMAB
     Indication: Pemphigoid
     Dosage: UNK
     Route: 065

REACTIONS (3)
  - Thrombocytopenia [Unknown]
  - Lymphopenia [Unknown]
  - Product use in unapproved indication [Unknown]
